FAERS Safety Report 8019425-0 (Version None)
Quarter: 2012Q1

REPORT INFORMATION
  Report Type: 
  Country: None (occurrence: None)
  Receive Date: 20120103
  Receipt Date: 20111226
  Transmission Date: 20120608
  Serious: Yes (Other)
  Sender: FDA-Public Use
  Company Number: PHHY2011FR112901

PATIENT
  Sex: Female

DRUGS (3)
  1. GLEEVEC [Suspect]
     Dosage: 600 MG, DAILY
     Route: 048
     Dates: start: 20061128
  2. GLEEVEC [Suspect]
     Indication: CHRONIC MYELOID LEUKAEMIA
     Dosage: 800 MG, DAILY
     Route: 048
     Dates: start: 20061108
  3. GLEEVEC [Suspect]
     Dosage: 400MG DAILY
     Route: 048
     Dates: start: 20070618, end: 20071113

REACTIONS (7)
  - PERICARDIAL EFFUSION [None]
  - DYSPNOEA EXERTIONAL [None]
  - VOMITING [None]
  - OEDEMA [None]
  - PERICARDIAL DISEASE [None]
  - DRUG INTOLERANCE [None]
  - NAUSEA [None]
